FAERS Safety Report 7691612-0 (Version None)
Quarter: 2011Q3

REPORT INFORMATION
  Report Type: 
  Country: None (occurrence: None)
  Receive Date: 20110818
  Receipt Date: 20110809
  Transmission Date: 20111222
  Serious: Yes (Hospitalization, Other)
  Sender: FDA-Public Use
  Company Number: JP-GENZYME-RENA-1001275

PATIENT
  Sex: Male

DRUGS (9)
  1. RENAGEL [Suspect]
     Dosage: 0.5 G, TID
     Route: 048
     Dates: start: 20071212, end: 20080108
  2. RENAGEL [Suspect]
     Dosage: 0.75 G, TID
     Route: 048
     Dates: start: 20080109, end: 20080318
  3. RENAGEL [Suspect]
     Dosage: 0.8 G, TID
     Route: 048
     Dates: start: 20110608, end: 20110624
  4. RENAGEL [Suspect]
     Indication: HYPERPHOSPHATAEMIA
     Dosage: 0.25 G, TID
     Route: 048
     Dates: start: 20071017, end: 20071211
  5. CANDESARTAN CILEXETIL [Concomitant]
     Indication: PRODUCT USED FOR UNKNOWN INDICATION
     Dosage: UNK
     Route: 065
     Dates: start: 20001129
  6. RENAGEL [Suspect]
     Dosage: 1.0 G, TID
     Route: 048
     Dates: start: 20080319, end: 20100511
  7. CINACALCET HYDROCHLORIDE [Concomitant]
     Indication: PRODUCT USED FOR UNKNOWN INDICATION
     Dosage: UNK
     Route: 065
     Dates: start: 20080512
  8. ADALAT [Concomitant]
     Indication: PRODUCT USED FOR UNKNOWN INDICATION
     Dosage: UNK
     Route: 065
     Dates: start: 20001129
  9. RENAGEL [Suspect]
     Dosage: 1.25 G, TID
     Route: 048
     Dates: start: 20100512, end: 20110607

REACTIONS (7)
  - DIVERTICULUM INTESTINAL [None]
  - HAEMORRHOIDS [None]
  - INFECTIOUS PERITONITIS [None]
  - COLONIC POLYP [None]
  - ANAL FISSURE [None]
  - DIVERTICULITIS [None]
  - SCIATICA [None]
